FAERS Safety Report 4744318-1 (Version None)
Quarter: 2005Q3

REPORT INFORMATION
  Report Type: 
  Country: None (occurrence: None)
  Receive Date: 20050812
  Receipt Date: 20050310
  Transmission Date: 20060218
  Serious: Yes (Hospitalization, Disabling)
  Sender: FDA-Public Use
  Company Number: US-MERCK-0503USA02310

PATIENT
  Age: 48 Year
  Sex: Female
  Weight: 73 kg

DRUGS (20)
  1. VIOXX [Suspect]
     Indication: FIBROMYALGIA
     Route: 048
     Dates: start: 20000713, end: 20010813
  2. VIOXX [Suspect]
     Indication: OSTEOARTHRITIS
     Route: 048
     Dates: start: 20000713, end: 20010813
  3. ACETAMINOPHEN AND PROPOXYPHENE NAPSYLATE [Concomitant]
     Route: 065
     Dates: start: 20000104
  4. PANMIST DM [Concomitant]
     Route: 065
  5. ALPRAZOLAM [Concomitant]
     Indication: DEPRESSION
     Route: 065
     Dates: start: 20001118
  6. AMBIEN [Concomitant]
     Indication: INSOMNIA
     Route: 065
     Dates: start: 20001104
  7. PREDNISONE [Concomitant]
     Indication: ARTHRITIS
     Route: 065
  8. PREVACID [Concomitant]
     Indication: DYSPEPSIA
     Route: 065
  9. LEVAQUIN [Concomitant]
     Route: 065
  10. CELEXA [Concomitant]
     Indication: DEPRESSION
     Route: 065
     Dates: start: 20001220
  11. CYCLOBENZAPRINE HYDROCHLORIDE [Concomitant]
     Indication: HYPOTONIA
     Route: 065
  12. AVELOX [Concomitant]
     Route: 065
  13. PROZAC [Concomitant]
     Indication: DEPRESSION
     Route: 065
     Dates: start: 20010423
  14. FUROSEMIDE [Concomitant]
     Route: 065
     Dates: start: 20010725
  15. FUROSEMIDE [Concomitant]
     Route: 065
     Dates: start: 20010725
  16. SERZONE [Concomitant]
     Indication: DEPRESSION
     Route: 065
     Dates: start: 20000121
  17. SERZONE [Concomitant]
     Route: 065
     Dates: start: 20000121
  18. ESTROGENS (UNSPECIFIED) [Concomitant]
     Route: 065
     Dates: start: 20010101, end: 20010530
  19. ATENOLOL [Concomitant]
     Route: 065
     Dates: start: 19990101
  20. ATENOLOL [Concomitant]
     Route: 065
     Dates: start: 19990101

REACTIONS (25)
  - ANGIOPATHY [None]
  - ASTHENIA [None]
  - BACK PAIN [None]
  - CEREBRAL INFARCTION [None]
  - CEREBROVASCULAR ACCIDENT [None]
  - CHEST PAIN [None]
  - COLITIS [None]
  - DEPRESSION [None]
  - DUODENITIS [None]
  - DYSPNOEA [None]
  - ENTERITIS [None]
  - GASTRIC ULCER [None]
  - GASTRITIS EROSIVE [None]
  - HAEMORRHOIDS [None]
  - HYPERTENSIVE CRISIS [None]
  - HYPOAESTHESIA [None]
  - NERVOUSNESS [None]
  - OESOPHAGITIS [None]
  - PAIN IN EXTREMITY [None]
  - PALPITATIONS [None]
  - SINUS TACHYCARDIA [None]
  - SINUSITIS [None]
  - SWELLING [None]
  - ULCER [None]
  - VISION BLURRED [None]
